FAERS Safety Report 7287687-3 (Version None)
Quarter: 2011Q1

REPORT INFORMATION
  Report Type: 
  Country: None (occurrence: None)
  Receive Date: 20110211
  Receipt Date: 20110128
  Transmission Date: 20110831
  Serious: Yes (Hospitalization, Other)
  Sender: FDA-Public Use
  Company Number: US-ELI_LILLY_AND_COMPANY-US201009003986

PATIENT
  Sex: Female

DRUGS (7)
  1. FORTEO [Suspect]
     Dosage: 20 UG, DAILY (1/D)
     Dates: end: 20101101
  2. FORTEO [Suspect]
     Indication: OSTEOPOROSIS
     Dosage: 20 UG, DAILY (1/D)
     Dates: start: 20100501
  3. ANTIINFLAMMATORY AGENTS, NON-STEROIDS [Concomitant]
     Indication: INFLAMMATION
  4. PREDNISONE [Concomitant]
  5. CALCIUM [Concomitant]
  6. VITAMIN D [Concomitant]
  7. ANTIINFLAMMATORY/ANTIRHEUMATIC PRODUCTS [Concomitant]

REACTIONS (14)
  - GANGRENE [None]
  - PAIN IN EXTREMITY [None]
  - LOCALISED INFECTION [None]
  - FOOT FRACTURE [None]
  - ARTHRALGIA [None]
  - PAIN [None]
  - BACK PAIN [None]
  - CHOLELITHIASIS [None]
  - FOOT DEFORMITY [None]
  - OEDEMA PERIPHERAL [None]
  - MUSCULAR WEAKNESS [None]
  - HYPERKERATOSIS [None]
  - HOSPITALISATION [None]
  - MALAISE [None]
